FAERS Safety Report 16043252 (Version 4)
Quarter: 2019Q3

REPORT INFORMATION
  Report Type: Report from Study
  Country: US (occurrence: US)
  Receive Date: 20190306
  Receipt Date: 20190821
  Transmission Date: 20191004
  Serious: Yes (Other)
  Sender: FDA-Public Use
  Company Number: US-JNJFOC-20190120554

PATIENT
  Sex: Male

DRUGS (12)
  1. TURMERIC [Concomitant]
     Active Substance: HERBALS\TURMERIC
  2. VITAMIN B12 [Concomitant]
     Active Substance: CYANOCOBALAMIN
  3. IMBRUVICA [Suspect]
     Active Substance: IBRUTINIB
     Indication: CHRONIC LYMPHOCYTIC LEUKAEMIA
     Route: 048
     Dates: start: 20180926
  4. CARBIDOPA W/LEVODOPA [Concomitant]
     Active Substance: CARBIDOPA\LEVODOPA
  5. COENZYME Q10 [Concomitant]
     Active Substance: UBIDECARENONE
  6. NEUPRO [Concomitant]
     Active Substance: ROTIGOTINE
  7. GLIPIZIDE. [Concomitant]
     Active Substance: GLIPIZIDE
  8. JANUVIA [Concomitant]
     Active Substance: SITAGLIPTIN PHOSPHATE
  9. VITAMIN D3 [Concomitant]
     Active Substance: CHOLECALCIFEROL
  10. VITAMIN B [Concomitant]
     Active Substance: VITAMIN B
  11. IMBRUVICA [Suspect]
     Active Substance: IBRUTINIB
     Route: 048
     Dates: start: 20181022, end: 20190327
  12. RITUXAN [Concomitant]
     Active Substance: RITUXIMAB

REACTIONS (5)
  - Otorrhoea [Recovering/Resolving]
  - Haematotympanum [Recovered/Resolved]
  - Laboratory test abnormal [Unknown]
  - Granuloma [Recovered/Resolved]
  - Deafness [Not Recovered/Not Resolved]
